FAERS Safety Report 13894098 (Version 1)
Quarter: 2017Q3

REPORT INFORMATION
  Report Type: Report from Study
  Country: US (occurrence: US)
  Receive Date: 20170822
  Receipt Date: 20170822
  Transmission Date: 20171127
  Serious: Yes (Other)
  Sender: FDA-Public Use
  Company Number: US-GILEAD-2017-0284193

PATIENT
  Age: 73 Year
  Sex: Male

DRUGS (3)
  1. IDELALISIB [Suspect]
     Active Substance: IDELALISIB
     Indication: CHRONIC LYMPHOCYTIC LEUKAEMIA
     Dosage: 150 MG, BID
     Route: 048
     Dates: start: 20160801
  2. IDELALISIB [Suspect]
     Active Substance: IDELALISIB
     Dosage: 100 MG, QD
     Route: 048
     Dates: start: 20161003
  3. IDELALISIB [Suspect]
     Active Substance: IDELALISIB
     Dosage: 100 MG, QOD
     Route: 048

REACTIONS (3)
  - Diarrhoea [Recovered/Resolved]
  - Off label use [Not Recovered/Not Resolved]
  - Herpes zoster [Not Recovered/Not Resolved]
